FAERS Safety Report 6050926-0 (Version None)
Quarter: 2009Q1

REPORT INFORMATION
  Report Type: 
  Country: None (occurrence: None)
  Receive Date: 20090121
  Receipt Date: 20090115
  Transmission Date: 20090719
  Serious: Yes (Death)
  Sender: FDA-Public Use
  Company Number: 2008SP012567

PATIENT
  Age: 42 Year
  Sex: Male
  Weight: 94.1 kg

DRUGS (5)
  1. PEG-INTRON [Suspect]
     Indication: HEPATITIS C
     Dosage: 120 MCG;QW;SC 100 MCG;QW;SC
     Route: 058
     Dates: start: 20070910, end: 20070918
  2. PEG-INTRON [Suspect]
     Indication: HEPATITIS C
     Dosage: 120 MCG;QW;SC 100 MCG;QW;SC
     Route: 058
     Dates: start: 20070925, end: 20080609
  3. REBETOL [Suspect]
     Indication: HEPATITIS C
     Dosage: 1000 MCG;QW;SC 800 MG;QD;SC
     Route: 058
     Dates: start: 20070910, end: 20070930
  4. REBETOL [Suspect]
     Indication: HEPATITIS C
     Dosage: 1000 MCG;QW;SC 800 MG;QD;SC
     Route: 058
     Dates: start: 20071001, end: 20080609
  5. BLOPRESS [Concomitant]

REACTIONS (3)
  - BACK PAIN [None]
  - MALAISE [None]
  - MYOCARDIAL INFARCTION [None]
